FAERS Safety Report 25002281 (Version 4)
Quarter: 2025Q2

REPORT INFORMATION
  Report Type: Spontaneous
  Country: US (occurrence: US)
  Receive Date: 20250224
  Receipt Date: 20250527
  Transmission Date: 20250716
  Serious: Yes (Other)
  Sender: BRISTOL-MYERS SQUIBB COMPANY
  Company Number: US-EXELIXIS-EXL-2025-005063

PATIENT
  Age: 64 Year
  Sex: Female

DRUGS (17)
  1. OPDIVO [Suspect]
     Active Substance: NIVOLUMAB
     Indication: Retroperitoneal cancer
     Dates: start: 20250123
  2. OPDIVO [Suspect]
     Active Substance: NIVOLUMAB
     Indication: Metastases to central nervous system
  3. OPDIVO [Suspect]
     Active Substance: NIVOLUMAB
     Indication: Metastasis
  4. YERVOY [Suspect]
     Active Substance: IPILIMUMAB
     Indication: Retroperitoneal cancer
     Dates: start: 20250123
  5. YERVOY [Suspect]
     Active Substance: IPILIMUMAB
     Indication: Metastases to central nervous system
  6. YERVOY [Suspect]
     Active Substance: IPILIMUMAB
     Indication: Metastasis
  7. CABOMETYX [Suspect]
     Active Substance: CABOZANTINIB S-MALATE
     Indication: Retroperitoneal cancer
     Dates: start: 20250123
  8. CABOMETYX [Suspect]
     Active Substance: CABOZANTINIB S-MALATE
     Indication: Metastases to central nervous system
  9. CABOMETYX [Suspect]
     Active Substance: CABOZANTINIB S-MALATE
     Indication: Metastasis
  10. VITAMIN D3 [Concomitant]
     Active Substance: CHOLECALCIFEROL
     Indication: Product used for unknown indication
  11. FAMOTIDINE [Concomitant]
     Active Substance: FAMOTIDINE
     Indication: Product used for unknown indication
  12. CEVIMELINE [Concomitant]
     Active Substance: CEVIMELINE
     Indication: Product used for unknown indication
  13. DEXAMETHASONE SODIUM SUCCINATE [Concomitant]
     Active Substance: DEXAMETHASONE SODIUM SUCCINATE
     Indication: Product used for unknown indication
  14. HYDROCORTISONE BUTYRATE [Concomitant]
     Active Substance: HYDROCORTISONE BUTYRATE
     Indication: Product used for unknown indication
  15. CALCIUM\MELATONIN\PYRIDOXINE HYDROCHLORIDE [Concomitant]
     Active Substance: CALCIUM\MELATONIN\PYRIDOXINE HYDROCHLORIDE
     Indication: Product used for unknown indication
  16. ZOLPIDEM [Concomitant]
     Active Substance: ZOLPIDEM TARTRATE
     Indication: Product used for unknown indication
  17. SENNA [Concomitant]
     Active Substance: SENNOSIDES
     Indication: Product used for unknown indication

REACTIONS (13)
  - Pericarditis [Not Recovered/Not Resolved]
  - Dry mouth [Not Recovered/Not Resolved]
  - Stomatitis [Not Recovered/Not Resolved]
  - Constipation [Recovered/Resolved]
  - Fatigue [Not Recovered/Not Resolved]
  - Weight decreased [Recovering/Resolving]
  - Decreased appetite [Recovering/Resolving]
  - Taste disorder [Not Recovered/Not Resolved]
  - Retching [Recovered/Resolved]
  - Diarrhoea [Not Recovered/Not Resolved]
  - Thyroid function test abnormal [Not Recovered/Not Resolved]
  - Off label use [Unknown]
  - Condition aggravated [Not Recovered/Not Resolved]

NARRATIVE: CASE EVENT DATE: 20250123
